FAERS Safety Report 10889821 (Version 2)
Quarter: 2015Q1

REPORT INFORMATION
  Report Type: Spontaneous
  Country: CO (occurrence: CO)
  Receive Date: 20150305
  Receipt Date: 20150311
  Transmission Date: 20150721
  Serious: Yes (Death, Other)
  Sender: FDA-Public Use
  Company Number: CO-ASTELLAS-2015US007011

PATIENT
  Sex: Male

DRUGS (1)
  1. PROGRAF [Suspect]
     Active Substance: TACROLIMUS\TACROLIMUS ANHYDROUS
     Indication: RENAL TRANSPLANT
     Dosage: 15 MG, ONCE DAILY (IN 24 HOUR)
     Route: 048
     Dates: start: 20140909

REACTIONS (2)
  - Cardio-respiratory arrest [Fatal]
  - Transplant rejection [Fatal]
